FAERS Safety Report 9947622 (Version 1)
Quarter: 2014Q1

REPORT INFORMATION
  Report Type: Report from Study
  Country: US (occurrence: US)
  Receive Date: 20140303
  Receipt Date: 20140303
  Transmission Date: 20141002
  Serious: No
  Sender: FDA-Public Use
  Company Number: US-ABBVIE-13P-163-1058622-00

PATIENT
  Age: 62 Year
  Sex: Female
  Weight: 94.43 kg

DRUGS (3)
  1. HUMIRA [Suspect]
     Indication: RHEUMATOID ARTHRITIS
     Route: 058
  2. UNKNOWN PAIN MEDICATION [Concomitant]
     Indication: RHEUMATOID ARTHRITIS
  3. UNKNOWN MEDICATION [Concomitant]
     Indication: ALLERGIC SINUSITIS

REACTIONS (2)
  - Arthralgia [Not Recovered/Not Resolved]
  - Drug dose omission [Recovered/Resolved]
